FAERS Safety Report 12356770 (Version 2)
Quarter: 2016Q2

REPORT INFORMATION
  Report Type: Spontaneous
  Country: US (occurrence: US)
  Receive Date: 20160511
  Receipt Date: 20160531
  Transmission Date: 20160815
  Serious: No
  Sender: FDA-Public Use
  Company Number: US-PFIZER INC-2016219481

PATIENT
  Sex: Male

DRUGS (1)
  1. DEPO-TESTOSTERONE [Suspect]
     Active Substance: TESTOSTERONE CYPIONATE
     Indication: HYPOGONADISM
     Dosage: UNK
     Route: 030

REACTIONS (4)
  - Injection site warmth [Unknown]
  - Injection site discomfort [Unknown]
  - Product physical issue [Unknown]
  - Injection site irritation [Unknown]
